FAERS Safety Report 10871614 (Version 1)
Quarter: 2015Q1

REPORT INFORMATION
  Report Type: Spontaneous
  Country: US (occurrence: US)
  Receive Date: 20150226
  Receipt Date: 20150226
  Transmission Date: 20150721
  Serious: Yes (Congenital Anomaly)
  Sender: FDA-Public Use
  Company Number: US-APOTEX-2015AP006942

PATIENT
  Age: 0 Day
  Sex: Male
  Weight: 3 kg

DRUGS (2)
  1. PAXIL CR [Suspect]
     Active Substance: PAROXETINE HYDROCHLORIDE
     Indication: DEPRESSION
     Dosage: 12.5 MG, TID
     Route: 064
     Dates: start: 2003, end: 2004
  2. PAXIL CR [Suspect]
     Active Substance: PAROXETINE HYDROCHLORIDE
     Indication: ANXIETY

REACTIONS (2)
  - Foetal exposure during pregnancy [Unknown]
  - Cardiac murmur [Recovered/Resolved]

NARRATIVE: CASE EVENT DATE: 20040728
